FAERS Safety Report 21410561 (Version 1)
Quarter: 2022Q4

REPORT INFORMATION
  Report Type: Spontaneous
  Country: US (occurrence: None)
  Receive Date: 20221003
  Receipt Date: 20221003
  Transmission Date: 20230112
  Serious: Yes (Other)
  Sender: FDA-Public Use
  Company Number: None

PATIENT
  Age: 50 Year
  Sex: Female

DRUGS (1)
  1. SUBOXONE [Suspect]
     Active Substance: BUPRENORPHINE HYDROCHLORIDE\NALOXONE HYDROCHLORIDE
     Indication: Drug use disorder
     Dosage: FREQUENCY : TWICE A DAY;?
     Route: 002

REACTIONS (6)
  - Tooth loss [None]
  - Device physical property issue [None]
  - Oral candidiasis [None]
  - Mouth swelling [None]
  - Oral mucosal blistering [None]
  - Pustule [None]

NARRATIVE: CASE EVENT DATE: 20220929
